FAERS Safety Report 7587297-4 (Version None)
Quarter: 2011Q3

REPORT INFORMATION
  Report Type: 
  Country: None (occurrence: None)
  Receive Date: 20110701
  Receipt Date: 20110629
  Transmission Date: 20111222
  Serious: Yes (Death, Hospitalization)
  Sender: FDA-Public Use
  Company Number: GB-AMGEN-UK371257

PATIENT
  Age: 60 Year
  Sex: Male
  Weight: 94.6 kg

DRUGS (2)
  1. PANITUMUMAB [Suspect]
     Indication: COLORECTAL CANCER
     Dosage: 840 MG, UNK
     Route: 042
     Dates: start: 20090903, end: 20091015
  2. IRINOTECAN HYDROCHLORIDE [Concomitant]
     Dosage: 650 MG, UNK
     Route: 042
     Dates: start: 20090903, end: 20091015

REACTIONS (1)
  - INTESTINAL PERFORATION [None]
